FAERS Safety Report 23266353 (Version 1)
Quarter: 2023Q4

REPORT INFORMATION
  Report Type: Spontaneous
  Country: US (occurrence: None)
  Receive Date: 20231205
  Receipt Date: 20231205
  Transmission Date: 20240110
  Serious: Yes (Hospitalization)
  Sender: FDA-Public Use
  Company Number: None

PATIENT
  Age: 72 Year
  Sex: Male
  Weight: 97.40 kg

DRUGS (1)
  1. ABEMACICLIB [Suspect]
     Active Substance: ABEMACICLIB
     Indication: Bladder cancer
     Dosage: FREQUENCY : TWICE A DAY;?
     Route: 048
     Dates: start: 20231010, end: 20231108

REACTIONS (8)
  - Tachycardia [None]
  - Dyspnoea [None]
  - Urinary tract infection [None]
  - Sepsis [None]
  - Asthma [None]
  - Nausea [None]
  - Vomiting [None]
  - Escherichia test positive [None]

NARRATIVE: CASE EVENT DATE: 20231124
